FAERS Safety Report 23713828 (Version 1)
Quarter: 2024Q2

REPORT INFORMATION
  Report Type: Spontaneous
  Country: RU (occurrence: None)
  Receive Date: 20240405
  Receipt Date: 20240405
  Transmission Date: 20240716
  Serious: Yes (Other)
  Sender: FDA-Public Use
  Company Number: 2024A079025

PATIENT
  Age: 91 Year
  Sex: Female
  Weight: 52 kg

DRUGS (8)
  1. TAGRISSO [Suspect]
     Active Substance: OSIMERTINIB
     Indication: Lung neoplasm malignant
     Route: 048
     Dates: start: 202112, end: 20240215
  2. TAGRISSO [Suspect]
     Active Substance: OSIMERTINIB
     Indication: Lung neoplasm malignant
     Route: 048
     Dates: start: 20240304
  3. ELIQUIS [Concomitant]
     Active Substance: APIXABAN
  4. CORDARONE [Concomitant]
     Active Substance: AMIODARONE HYDROCHLORIDE
     Dosage: 1 TABLET FIVE TIMES A WEEK
  5. AMLODIPINE BESYLATE\IRBESARTAN [Concomitant]
     Active Substance: AMLODIPINE BESYLATE\IRBESARTAN
     Dosage: 10 MG + 300 MG A HALF TABLET 1 TIME A DAY
  6. NEBIVOLOL [Concomitant]
     Active Substance: NEBIVOLOL
  7. TORSEMIDE [Concomitant]
     Active Substance: TORSEMIDE
  8. MG-MEDICATION [Concomitant]

REACTIONS (8)
  - Malignant neoplasm progression [Unknown]
  - Arrhythmia [Unknown]
  - Body temperature increased [Unknown]
  - Faecaloma [Unknown]
  - Haemoglobin decreased [Unknown]
  - Protein total decreased [Unknown]
  - Metastases to central nervous system [Unknown]
  - Intentional product misuse [Unknown]
